FAERS Safety Report 15628632 (Version 3)
Quarter: 2018Q4

REPORT INFORMATION
  Report Type: Spontaneous
  Country: ES (occurrence: ES)
  Receive Date: 20181116
  Receipt Date: 20181217
  Transmission Date: 20190205
  Serious: Yes (Other)
  Sender: FDA-Public Use
  Company Number: PHHY2018ES157116

PATIENT
  Age: 63 Year
  Sex: Male

DRUGS (25)
  1. ZOLEDRONATE [Suspect]
     Active Substance: ZOLEDRONIC ACID
     Indication: PARAGANGLION NEOPLASM
  2. DACARBAZINE. [Suspect]
     Active Substance: DACARBAZINE
     Indication: METASTASES TO SOFT TISSUE
     Dosage: 600 MG/M2, ON DAY AND 2 EVERY 21 DAYS
     Route: 065
     Dates: start: 201502
  3. SOMATULINE [Suspect]
     Active Substance: LANREOTIDE ACETATE
     Indication: PARAGANGLION NEOPLASM MALIGNANT
  4. SOMATULINE [Suspect]
     Active Substance: LANREOTIDE ACETATE
     Indication: PARAGANGLION NEOPLASM
  5. TEMOZOLOMIDE. [Suspect]
     Active Substance: TEMOZOLOMIDE
     Indication: METASTASES TO SOFT TISSUE
  6. OLMESARTANUM [Concomitant]
     Indication: PAIN
  7. ZOLEDRONATE [Suspect]
     Active Substance: ZOLEDRONIC ACID
     Indication: PARAGANGLION NEOPLASM MALIGNANT
  8. TEMOZOLOMIDE. [Suspect]
     Active Substance: TEMOZOLOMIDE
     Indication: METASTASES TO BONE
     Dosage: 75 MG/M2, QD, WITH A SCHEDULE OF 3 WEEKS ON TREATMENT FOLLOWED BY 1 WEEK OFF TREATMENT
     Route: 065
     Dates: start: 201512, end: 201702
  9. VINCRISTINE [Suspect]
     Active Substance: VINCRISTINE
     Indication: PARAGANGLION NEOPLASM MALIGNANT
     Dosage: 1.4 MG/M2, Q3W, ON DAY 1
     Route: 065
     Dates: start: 201502, end: 2015
  10. CYCLOPHOSPHAMIDE. [Suspect]
     Active Substance: CYCLOPHOSPHAMIDE
     Indication: METASTASES TO SOFT TISSUE
  11. VINCRISTINE [Suspect]
     Active Substance: VINCRISTINE
     Indication: METASTASES TO SOFT TISSUE
  12. ZOLEDRONATE [Suspect]
     Active Substance: ZOLEDRONIC ACID
     Indication: METASTASES TO BONE
  13. VINCRISTINE [Suspect]
     Active Substance: VINCRISTINE
     Indication: METASTASES TO BONE
  14. FENTANIL [Concomitant]
     Active Substance: FENTANYL
     Indication: HYPERTENSION
     Dosage: 200 ?G EVERY 3 DAYS
     Route: 062
  15. SOMATULINE [Suspect]
     Active Substance: LANREOTIDE ACETATE
     Indication: METASTASES TO SOFT TISSUE
     Dosage: 120 MG, Q2W (AUTOGEL)
     Route: 065
     Dates: start: 201502, end: 201702
  16. SOMATULINE [Suspect]
     Active Substance: LANREOTIDE ACETATE
     Indication: METASTASES TO BONE
     Dosage: 120 MG, Q2W
     Route: 065
     Dates: start: 201703
  17. TEMOZOLOMIDE. [Suspect]
     Active Substance: TEMOZOLOMIDE
     Indication: PARAGANGLION NEOPLASM MALIGNANT
  18. CYCLOPHOSPHAMIDE. [Suspect]
     Active Substance: CYCLOPHOSPHAMIDE
     Indication: METASTASES TO BONE
  19. DACARBAZINE. [Suspect]
     Active Substance: DACARBAZINE
     Indication: METASTASES TO BONE
  20. FENTANIL [Concomitant]
     Active Substance: FENTANYL
     Indication: PAIN
  21. ZOLEDRONATE [Suspect]
     Active Substance: ZOLEDRONIC ACID
     Indication: METASTASES TO SOFT TISSUE
     Dosage: 4 MG, FOR 28 DAYS
     Route: 065
     Dates: start: 201502
  22. DACARBAZINE. [Suspect]
     Active Substance: DACARBAZINE
     Indication: PARAGANGLION NEOPLASM MALIGNANT
  23. OLMESARTANUM [Concomitant]
     Indication: HYPERTENSION
     Dosage: 20 MG, UNK
     Route: 065
  24. TEMOZOLOMIDE. [Suspect]
     Active Substance: TEMOZOLOMIDE
     Indication: PARAGANGLION NEOPLASM
     Dosage: 75 MG/M2, QD, WITH A SCHEDULE OF 3 WEEKS ON TREATMENT FOLLOWED BY 1 WEEK OFF TREATMENT
     Route: 065
     Dates: start: 201703
  25. CYCLOPHOSPHAMIDE. [Suspect]
     Active Substance: CYCLOPHOSPHAMIDE
     Indication: PARAGANGLION NEOPLASM MALIGNANT
     Dosage: 750 MG/M2, ON DAY 1, EVERY 21 DAYS
     Route: 065
     Dates: start: 201502, end: 2015

REACTIONS (5)
  - Lymphopenia [Unknown]
  - Metabolic disorder [Unknown]
  - Condition aggravated [Recovering/Resolving]
  - Paraganglion neoplasm malignant [Unknown]
  - Drug ineffective [Unknown]

NARRATIVE: CASE EVENT DATE: 2015
